FAERS Safety Report 5716917-1 (Version None)
Quarter: 2008Q2

REPORT INFORMATION
  Report Type: 
  Country: None (occurrence: None)
  Receive Date: 20080424
  Receipt Date: 20080411
  Transmission Date: 20081010
  Serious: Yes (Other)
  Sender: FDA-Public Use
  Company Number: US-AMGEN-QUU274315

PATIENT
  Sex: Male

DRUGS (1)
  1. ENBREL [Suspect]
     Indication: DRUG USE FOR UNKNOWN INDICATION
     Route: 058
     Dates: start: 20070201

REACTIONS (13)
  - ANTINUCLEAR ANTIBODY INCREASED [None]
  - AUTOIMMUNE DISORDER [None]
  - BLINDNESS UNILATERAL [None]
  - CATARACT [None]
  - CONDITION AGGRAVATED [None]
  - EYE IRRITATION [None]
  - FATIGUE [None]
  - GLAUCOMA [None]
  - HYPERSOMNIA [None]
  - INJECTION SITE PAIN [None]
  - LACRIMATION INCREASED [None]
  - PHOTOPHOBIA [None]
  - RHEUMATOID ARTHRITIS [None]
